FAERS Safety Report 17611300 (Version 1)
Quarter: 2020Q2

REPORT INFORMATION
  Report Type: Other
  Country: DE (occurrence: DE)
  Receive Date: 20200401
  Receipt Date: 20200401
  Transmission Date: 20200713
  Serious: Yes (Hospitalization, Other)
  Sender: FDA-Public Use
  Company Number: DE-EMCURE PHARMACEUTICALS LTD-2020-EPL-000377

PATIENT
  Age: 78 Month
  Sex: Female

DRUGS (19)
  1. LACOSAMIDE. [Suspect]
     Active Substance: LACOSAMIDE
     Indication: TUBEROUS SCLEROSIS COMPLEX
     Dosage: UNK
     Route: 065
  2. PROPRANOLOL [Concomitant]
     Active Substance: PROPRANOLOL HYDROCHLORIDE
     Indication: TUBEROUS SCLEROSIS COMPLEX
     Dosage: UNK
     Route: 065
  3. CLOBAZAM. [Interacting]
     Active Substance: CLOBAZAM
     Indication: TUBEROUS SCLEROSIS COMPLEX
     Dosage: 2.5 MG, BID (TWICE DAILY)
     Route: 065
     Dates: start: 2018
  4. EVEROLIMUS. [Interacting]
     Active Substance: EVEROLIMUS
     Indication: EPILEPSY
     Dosage: 0.13 MG/KG, QD
     Route: 065
  5. OXCARBAZEPINE. [Suspect]
     Active Substance: OXCARBAZEPINE
     Indication: PARTIAL SEIZURES
  6. VIGABATRIN. [Suspect]
     Active Substance: VIGABATRIN
     Indication: PARTIAL SEIZURES
     Dosage: UNK
  7. EVEROLIMUS. [Interacting]
     Active Substance: EVEROLIMUS
     Dosage: 5 MG, QD, DAILY
     Route: 048
     Dates: start: 20190928
  8. EVEROLIMUS. [Interacting]
     Active Substance: EVEROLIMUS
     Dosage: 0.3 MG/KG, QD, DAILY
     Route: 065
     Dates: start: 2018
  9. ZONISAMIDE. [Suspect]
     Active Substance: ZONISAMIDE
     Indication: PARTIAL SEIZURES
     Dosage: UNK
  10. TOPIRAMATE. [Suspect]
     Active Substance: TOPIRAMATE
     Indication: PARTIAL SEIZURES
     Dosage: UNK
  11. CANNABIDIOL [Interacting]
     Active Substance: CANNABIDIOL
     Dosage: UNK
     Route: 065
     Dates: start: 20180928, end: 201903
  12. CARBAMAZEPINE. [Suspect]
     Active Substance: CARBAMAZEPINE
     Indication: PARTIAL SEIZURES
  13. CANNABIDIOL [Interacting]
     Active Substance: CANNABIDIOL
     Indication: EPILEPSY
     Dosage: 500 MG, DAILY, QD (20.4 MG/KG/DAY)
     Route: 065
  14. VALPROATE [Suspect]
     Active Substance: VALPROIC ACID
     Indication: PARTIAL SEIZURES
  15. LAMOTRIGINE. [Suspect]
     Active Substance: LAMOTRIGINE
     Indication: TUBEROUS SCLEROSIS COMPLEX
     Dosage: UNK
     Route: 065
  16. CANNABIDIOL [Interacting]
     Active Substance: CANNABIDIOL
     Indication: TUBEROUS SCLEROSIS COMPLEX
     Dosage: 200 MG, DAILY, QD (9.3 MG/KG/DAY)
     Route: 065
  17. EVEROLIMUS. [Interacting]
     Active Substance: EVEROLIMUS
     Dosage: 0.6 MG/KG, QD, DAILY
     Route: 065
     Dates: start: 2018
  18. EVEROLIMUS. [Interacting]
     Active Substance: EVEROLIMUS
     Dosage: 0.15 MILLIGRAM/KILOGRAM, DAILY (INITIATION DAILY DOSE OF 0.15 MG/KG/DAY TO MAXIMUM DOSE OF 0.6MG/KG/
     Route: 065
     Dates: start: 201712
  19. SULTHIAME [Suspect]
     Active Substance: SULTHIAME
     Indication: PARTIAL SEIZURES
     Dosage: UNK

REACTIONS (10)
  - Drug interaction [Recovered/Resolved]
  - Drug level increased [Not Recovered/Not Resolved]
  - Off label use [Unknown]
  - Therapeutic product effective for unapproved indication [Unknown]
  - Drug ineffective [Unknown]
  - Drug level increased [Recovered/Resolved]
  - Tonic convulsion [Unknown]
  - Epilepsy [Unknown]
  - Therapeutic product ineffective for unapproved indication [Not Recovered/Not Resolved]
  - Drug interaction [Unknown]

NARRATIVE: CASE EVENT DATE: 20181027
